FAERS Safety Report 11703440 (Version 1)
Quarter: 2015Q4

REPORT INFORMATION
  Report Type: Spontaneous
  Country: US (occurrence: US)
  Receive Date: 20151105
  Receipt Date: 20151105
  Transmission Date: 20160304
  Serious: No
  Sender: FDA-Public Use
  Company Number: US-ANACOR-2015ANA00107

PATIENT
  Age: 73 Year
  Sex: Male
  Weight: 72.56 kg

DRUGS (2)
  1. KERYDIN [Suspect]
     Active Substance: TAVABOROLE
     Indication: ONYCHOMYCOSIS
     Dosage: 1 GTT, 1X/DAY
     Route: 061
     Dates: start: 201502, end: 20150804
  2. SEVERAL UNSPECIFIED PILLS [Concomitant]
     Dosage: UNK, 1X/DAY

REACTIONS (2)
  - Application site erythema [Recovering/Resolving]
  - Application site discharge [Recovered/Resolved]

NARRATIVE: CASE EVENT DATE: 20150729
